FAERS Safety Report 16715261 (Version 2)
Quarter: 2019Q3

REPORT INFORMATION
  Report Type: Spontaneous
  Country: US (occurrence: US)
  Receive Date: 20190819
  Receipt Date: 20190930
  Transmission Date: 20191005
  Serious: Yes (Other)
  Sender: FDA-Public Use
  Company Number: US-PFIZER INC-2019348320

PATIENT
  Age: 58 Year
  Sex: Female

DRUGS (1)
  1. XELJANZ [Suspect]
     Active Substance: TOFACITINIB CITRATE
     Dosage: 5 MG, UNK

REACTIONS (7)
  - Pain [Unknown]
  - Therapeutic product effect incomplete [Unknown]
  - Alopecia [Unknown]
  - Coeliac disease [Unknown]
  - Arthropathy [Unknown]
  - Uterine leiomyoma [Unknown]
  - Swelling [Unknown]
